FAERS Safety Report 20848079 (Version 2)
Quarter: 2022Q2

REPORT INFORMATION
  Report Type: Report from Study
  Country: US (occurrence: US)
  Receive Date: 20220519
  Receipt Date: 20220617
  Transmission Date: 20220721
  Serious: Yes (Hospitalization, Other)
  Sender: FDA-Public Use
  Company Number: US-HLS-202200366

PATIENT
  Age: 19 Year
  Sex: Female

DRUGS (2)
  1. CLOZAPINE [Suspect]
     Active Substance: CLOZAPINE
     Indication: Product used for unknown indication
     Route: 065
  2. CLOZAPINE [Suspect]
     Active Substance: CLOZAPINE
     Indication: Product used for unknown indication
     Dosage: 300MG AND 200MG , THEN STOPPED
     Route: 065

REACTIONS (4)
  - Cardiac disorder [Unknown]
  - Myocarditis [Unknown]
  - Neutropenia [Recovered/Resolved]
  - Volvulus [Unknown]

NARRATIVE: CASE EVENT DATE: 20200101
